FAERS Safety Report 25638732 (Version 2)
Quarter: 2025Q3

REPORT INFORMATION
  Report Type: Spontaneous
  Country: US (occurrence: US)
  Receive Date: 20250804
  Receipt Date: 20250813
  Transmission Date: 20251020
  Serious: Yes (Other)
  Sender: BAYER HEALTHCARE LLC
  Company Number: US-BAYER-2025A101450

PATIENT
  Sex: Female

DRUGS (5)
  1. MIDOL COMPLETE [Suspect]
     Active Substance: ACETAMINOPHEN\CAFFEINE\PYRILAMINE MALEATE
     Indication: Migraine
     Route: 048
     Dates: start: 2023
  2. NURTEC ODT [Suspect]
     Active Substance: RIMEGEPANT SULFATE
     Indication: Migraine
     Dates: start: 20250115
  3. UBRELVY [Suspect]
     Active Substance: UBROGEPANT
     Indication: Migraine
     Dates: start: 20250115
  4. SUMATRIPTAN [Suspect]
     Active Substance: SUMATRIPTAN
     Indication: Migraine
     Route: 048
     Dates: start: 202403
  5. PROPRANOLOL [Suspect]
     Active Substance: PROPRANOLOL HYDROCHLORIDE
     Indication: Migraine
     Dosage: 40 MG, BID
     Route: 048

REACTIONS (2)
  - Gestational hypertension [Unknown]
  - Maternal exposure during pregnancy [None]

NARRATIVE: CASE EVENT DATE: 20250430
